FAERS Safety Report 26208593 (Version 1)
Quarter: 2025Q4

REPORT INFORMATION
  Report Type: Spontaneous
  Country: US (occurrence: None)
  Receive Date: 20251227
  Receipt Date: 20251227
  Transmission Date: 20260119
  Serious: No
  Sender: FDA-CTU
  Company Number: None

PATIENT
  Age: 37 Year
  Sex: Female
  Weight: 60.75 kg

DRUGS (1)
  1. TRINTELLIX [Suspect]
     Active Substance: VORTIOXETINE HYDROBROMIDE
     Indication: Depression
     Dosage: 1 TABLET ORAL
     Route: 048
     Dates: start: 20251209

REACTIONS (5)
  - Flushing [None]
  - Night sweats [None]
  - Diarrhoea [None]
  - Flatulence [None]
  - Abdominal distension [None]

NARRATIVE: CASE EVENT DATE: 20251226
